FAERS Safety Report 6253309-3 (Version None)
Quarter: 2009Q3

REPORT INFORMATION
  Report Type: 
  Country: None (occurrence: None)
  Receive Date: 20090701
  Receipt Date: 20090622
  Transmission Date: 20100115
  Serious: Yes (Hospitalization)
  Sender: FDA-Public Use
  Company Number: DK-ABBOTT-09P-044-0581338-00

PATIENT
  Sex: Female

DRUGS (1)
  1. LEUPRORELIN ACETATE [Suspect]
     Indication: PRECOCIOUS PUBERTY
     Dates: start: 20090605

REACTIONS (5)
  - CHEST PAIN [None]
  - DYSPNOEA [None]
  - GASTROOESOPHAGEAL REFLUX DISEASE [None]
  - PYREXIA [None]
  - RASH [None]
